FAERS Safety Report 5874389-0 (Version None)
Quarter: 2008Q3

REPORT INFORMATION
  Report Type: 
  Country: None (occurrence: None)
  Receive Date: 20080908
  Receipt Date: 20080826
  Transmission Date: 20090109
  Serious: Yes (Death, Other)
  Sender: FDA-Public Use
  Company Number: US-PFIZER INC-2008071857

PATIENT

DRUGS (1)
  1. CHANTIX [Suspect]
     Dates: end: 20080801

REACTIONS (1)
  - MYOCARDIAL INFARCTION [None]
